FAERS Safety Report 19389698 (Version 1)
Quarter: 2021Q2

REPORT INFORMATION
  Report Type: Spontaneous
  Country: US (occurrence: US)
  Receive Date: 20210608
  Receipt Date: 20210608
  Transmission Date: 20210717
  Serious: Yes (Other)
  Sender: FDA-Public Use
  Company Number: None

PATIENT
  Age: 67 Year
  Sex: Female
  Weight: 61.23 kg

DRUGS (12)
  1. VITAMIN B COMPLEX [Concomitant]
     Active Substance: CYANOCOBALAMIN\DEXPANTHENOL\NIACINAMIDE\PYRIDOXINE HYDROCHLORIDE\RIBOFLAVIN 5^-PHOSPHATE SODIUM\THIAMINE HYDROCHLORIDE\VITAMIN B COMPLEX
  2. PROBENECID?COLCHICINE [Suspect]
     Active Substance: COLCHICINE\PROBENECID
     Indication: OSTEOARTHRITIS
     Dosage: ?          QUANTITY:1 DF DOSAGE FORM;?
     Route: 048
     Dates: start: 20210506, end: 20210511
  3. VITAMIN K2 [Concomitant]
     Active Substance: MENAQUINONE 6
  4. OMEGA??3 [Concomitant]
  5. ZADITOR EYE DROPS [Concomitant]
  6. CALCIUM LACTATE [Concomitant]
     Active Substance: CALCIUM LACTATE
  7. VOLTAREN TOPICAL GEL [Concomitant]
  8. COLLAGEN [Concomitant]
     Active Substance: COLLAGEN
  9. MULTIVITS [Concomitant]
  10. COENZYME Q10 [Concomitant]
     Active Substance: DIETARY SUPPLEMENT\UBIDECARENONE
  11. PEPCID AC [Concomitant]
     Active Substance: FAMOTIDINE
  12. VIT D [Concomitant]
     Active Substance: VITAMIN D NOS

REACTIONS (3)
  - Hypoaesthesia [None]
  - Pain in extremity [None]
  - Therapy cessation [None]

NARRATIVE: CASE EVENT DATE: 20210507
